FAERS Safety Report 21477964 (Version 1)
Quarter: 2022Q4

REPORT INFORMATION
  Report Type: Spontaneous
  Country: CA (occurrence: None)
  Receive Date: 20221018
  Receipt Date: 20221018
  Transmission Date: 20230112
  Serious: Yes (Disabling)
  Sender: FDA-Public Use
  Company Number: None

PATIENT
  Age: 46 Year
  Sex: Female
  Weight: 57 kg

DRUGS (5)
  1. METRONIDAZOLE [Suspect]
     Active Substance: METRONIDAZOLE
     Indication: Colitis ischaemic
     Dosage: FREQUENCY : 3 TIMES A DAY;?
     Route: 048
     Dates: start: 20220108, end: 20220118
  2. CIPROFLOXACIN [Suspect]
     Active Substance: CIPROFLOXACIN
  3. AMLODIPINE [Concomitant]
     Active Substance: AMLODIPINE BESYLATE
  4. MAGNESIUM BISGLYCINATE [Concomitant]
  5. PROBIOTICS NOS [Concomitant]
     Active Substance: PROBIOTICS NOS

REACTIONS (19)
  - Myalgia [None]
  - Pain [None]
  - Back pain [None]
  - Muscle twitching [None]
  - Paraesthesia [None]
  - Arthralgia [None]
  - Pelvic pain [None]
  - Head discomfort [None]
  - Muscle atrophy [None]
  - Constipation [None]
  - Nausea [None]
  - Somnolence [None]
  - Dizziness [None]
  - Palpitations [None]
  - Vision blurred [None]
  - Diarrhoea [None]
  - Hypoaesthesia [None]
  - Tenosynovitis [None]
  - Toxicity to various agents [None]

NARRATIVE: CASE EVENT DATE: 20220112
